FAERS Safety Report 7032180-6 (Version None)
Quarter: 2010Q4

REPORT INFORMATION
  Report Type: 
  Country: None (occurrence: None)
  Receive Date: 20101007
  Receipt Date: 20100929
  Transmission Date: 20110411
  Serious: Yes (Hospitalization)
  Sender: FDA-Public Use
  Company Number: US-NOVOPROD-312142

PATIENT
  Sex: Female
  Weight: 90.703 kg

DRUGS (22)
  1. VICTOZA [Suspect]
     Indication: TYPE 2 DIABETES MELLITUS
     Dosage: 0.6 MG, QD
     Route: 058
     Dates: start: 20100504
  2. VICTOZA [Suspect]
     Dosage: 1.2 MG, QD
     Route: 058
     Dates: start: 20100501, end: 20100501
  3. VICTOZA [Suspect]
     Dosage: 1.8 MG, QD
     Route: 058
     Dates: start: 20100622
  4. VICTOZA [Suspect]
     Dosage: 1.2 MG, QD
     Route: 058
     Dates: end: 20100708
  5. LEVEMIR [Concomitant]
     Indication: TYPE 2 DIABETES MELLITUS
     Dosage: TITRATE UP TO 88 U AM, 48 PM
     Route: 058
  6. ENALAPRIL MALEATE [Concomitant]
     Indication: PROPHYLAXIS
     Dosage: 2.5 MG, QD
     Route: 048
  7. ADVAIR DISKUS 100/50 [Concomitant]
     Indication: PRODUCT USED FOR UNKNOWN INDICATION
     Dosage: 250-50 MCG, 1 INHALATION BID
     Route: 055
  8. ASPIRIN [Concomitant]
     Indication: PRODUCT USED FOR UNKNOWN INDICATION
     Dosage: 81 MG, QD
     Route: 048
  9. EFFEXOR [Concomitant]
     Indication: PRODUCT USED FOR UNKNOWN INDICATION
     Dosage: 75 MG, QD
     Route: 048
  10. ELAVIL [Concomitant]
     Indication: INSOMNIA
     Dosage: 1- 2 TABS AT BEDTIME AS NEEDED
     Route: 048
  11. HYDROCHLOROTHIAZIDE [Concomitant]
     Indication: PRODUCT USED FOR UNKNOWN INDICATION
     Dosage: 12.5 MG, QD
     Route: 048
  12. IMITREX [Concomitant]
     Indication: PRODUCT USED FOR UNKNOWN INDICATION
     Dosage: 100 MG, TAKE AS DIRECTED
     Route: 048
  13. LORATADINE [Concomitant]
     Indication: HYPERSENSITIVITY
     Dosage: 10 MG, QD
     Route: 048
  14. LORTAB [Concomitant]
     Indication: PAIN
     Dosage: 5/500 500 MG-5 MG  1 QDAY PRN
     Route: 048
  15. MELOXICAM [Concomitant]
     Indication: BACK PAIN
     Dosage: 7.5 MG, BID
     Route: 048
  16. METFORMIN HYDROCHLORIDE [Concomitant]
     Indication: PRODUCT USED FOR UNKNOWN INDICATION
     Dosage: 1000 MG, BID
     Route: 048
  17. NEURONTIN [Concomitant]
     Indication: PAIN IN EXTREMITY
     Dosage: 300 MG, QHS
     Route: 048
  18. PLAVIX [Concomitant]
     Indication: PRODUCT USED FOR UNKNOWN INDICATION
     Dosage: 75 MG, QD
     Route: 048
  19. PROVENTIL HFA                      /00139501/ [Concomitant]
     Indication: PRODUCT USED FOR UNKNOWN INDICATION
     Dosage: 90 MCG/INH 2 PUFFS TID
  20. SIMVASTATIN [Concomitant]
     Indication: PRODUCT USED FOR UNKNOWN INDICATION
     Dosage: 80 MG, QD BEDTIME
     Route: 048
  21. ULTRACET [Concomitant]
     Indication: PRODUCT USED FOR UNKNOWN INDICATION
     Dosage: 325-37.5 MG, EVERY 6 HOURS AS NEEDED
     Route: 048
  22. VITAMIN A [Concomitant]
     Indication: PRODUCT USED FOR UNKNOWN INDICATION
     Dosage: 50000 INTL UNITS, 1 BY MOUTH ONCE WEEKLY
     Route: 048

REACTIONS (2)
  - NAUSEA [None]
  - PANCREATITIS ACUTE [None]
